FAERS Safety Report 4387447-7 (Version None)
Quarter: 2004Q2

REPORT INFORMATION
  Report Type: 
  Country: None (occurrence: None)
  Receive Date: 20040629
  Receipt Date: 20040629
  Transmission Date: 20050107
  Serious: No
  Sender: FDA-Public Use
  Company Number: None

PATIENT
  Sex: Male
  Weight: 79.3795 kg

DRUGS (2)
  1. ISONIAZID [Suspect]
     Indication: TUBERCULIN TEST POSITIVE
     Dosage: 900 MG TWICE WEEKLY PO
     Route: 048
     Dates: start: 20030620, end: 20040309
  2. PYRIDOXINE [Concomitant]

REACTIONS (2)
  - ALANINE AMINOTRANSFERASE INCREASED [None]
  - ASPARTATE AMINOTRANSFERASE INCREASED [None]
